FAERS Safety Report 8799235 (Version 1)
Quarter: 2012Q4

REPORT INFORMATION
  Report Type: 
  Country: DE (occurrence: DE)
  Receive Date: 20120920
  Receipt Date: 20120920
  Transmission Date: 20130627
  Serious: Yes (Other)
  Sender: FDA-Public Use
  Company Number: DE-PFIZER INC-2012229243

PATIENT
  Age: 91 Year
  Sex: Male
  Weight: 75 kg

DRUGS (1)
  1. RAMIPRIL [Suspect]
     Indication: HYPERTENSION
     Dosage: 2.5 mg, 1x/day
     Route: 048
     Dates: end: 20120426

REACTIONS (5)
  - Breast pain [Recovering/Resolving]
  - Gynaecomastia [Recovering/Resolving]
  - Breast mass [Not Recovered/Not Resolved]
  - Breast swelling [Not Recovered/Not Resolved]
  - Tenderness [Recovered/Resolved]
